FAERS Safety Report 8784196 (Version 1)
Quarter: 2012Q4

REPORT INFORMATION
  Report Type: Report from Study
  Country: US (occurrence: US)
  Receive Date: 20120913
  Receipt Date: 20120913
  Transmission Date: 20130627
  Serious: No
  Sender: FDA-Public Use
  Company Number: US-VERTEX PHARMACEUTICAL INC.-AE-2012-008993

PATIENT
  Sex: Female

DRUGS (4)
  1. INCIVEK [Suspect]
     Indication: HEPATITIS C
     Route: 048
     Dates: start: 20120423
  2. RIBAPAK [Concomitant]
     Indication: HEPATITIS C
     Route: 048
     Dates: start: 20120423
  3. PEG-INTRON [Concomitant]
     Indication: HEPATITIS C
     Route: 058
     Dates: start: 20120423
  4. LACTULOSE [Concomitant]
     Route: 048
     Dates: start: 20120510

REACTIONS (6)
  - Depression [Unknown]
  - Dyspepsia [Recovered/Resolved]
  - Fatigue [Unknown]
  - Rash [Unknown]
  - Haemorrhoidal haemorrhage [Unknown]
  - Anal pruritus [Unknown]
